FAERS Safety Report 4953922-7 (Version None)
Quarter: 2006Q1

REPORT INFORMATION
  Report Type: 
  Country: None (occurrence: None)
  Receive Date: 20060327
  Receipt Date: 20050301
  Transmission Date: 20060701
  Serious: Yes (Hospitalization)
  Sender: FDA-Public Use
  Company Number: DE-BRISTOL-MYERS SQUIBB COMPANY-13304662

PATIENT
  Age: 48 Year
  Sex: Male
  Weight: 70 kg

DRUGS (13)
  1. SUSTIVA [Suspect]
     Indication: HIV INFECTION
     Dates: start: 20010101, end: 20040517
  2. REYATAZ [Suspect]
     Indication: HIV INFECTION
     Dates: start: 20040517
  3. ZIDOVUDINE [Suspect]
     Indication: HIV INFECTION
     Dates: start: 20010101, end: 20040101
  4. TENOFOVIR [Suspect]
     Indication: HIV INFECTION
     Dates: start: 20010101, end: 20040517
  5. LAMIVUDINE [Suspect]
     Indication: HIV INFECTION
     Dates: start: 20010101, end: 20040101
  6. ABACAVIR [Suspect]
     Indication: HIV INFECTION
     Dates: start: 20010101, end: 20040101
  7. COMBIVIR [Suspect]
     Indication: HIV INFECTION
     Dates: start: 20040101, end: 20040517
  8. LOPINAVIR [Suspect]
     Indication: HIV INFECTION
     Dates: start: 20040517
  9. RIFAMPICIN [Concomitant]
     Indication: LYMPH NODE TUBERCULOSIS
  10. RIFABUTIN [Concomitant]
     Indication: LYMPH NODE TUBERCULOSIS
     Dates: start: 20040201, end: 20041201
  11. ISONIAZID [Concomitant]
     Indication: LYMPH NODE TUBERCULOSIS
     Dates: start: 20040225, end: 20041201
  12. MYAMBUTOL [Concomitant]
     Indication: LYMPH NODE TUBERCULOSIS
     Dates: start: 20040225, end: 20041201
  13. PYRAZINAMIDE [Concomitant]
     Indication: LYMPH NODE TUBERCULOSIS
     Dates: start: 20040201, end: 20041201

REACTIONS (6)
  - BLOOD TRIGLYCERIDES INCREASED [None]
  - INSOMNIA [None]
  - LYMPH NODE TUBERCULOSIS [None]
  - NECROTISING GRANULOMATOUS LYMPHADENITIS [None]
  - PSYCHOTIC DISORDER [None]
  - WOUND SECRETION [None]
